FAERS Safety Report 6330065-1 (Version None)
Quarter: 2009Q3

REPORT INFORMATION
  Report Type: 
  Country: None (occurrence: None)
  Receive Date: 20090826
  Receipt Date: 20090826
  Transmission Date: 20100115
  Serious: Yes (Hospitalization)
  Sender: FDA-Public Use
  Company Number: None

PATIENT
  Sex: Male

DRUGS (1)
  1. EFFEXOR XR [Suspect]
     Dosage: 1 CAPSULE DAILY PO
     Route: 048
     Dates: start: 20080801, end: 20090820

REACTIONS (3)
  - NERVOUS SYSTEM DISORDER [None]
  - PARAESTHESIA [None]
  - VERTIGO [None]
